FAERS Safety Report 16771919 (Version 1)
Quarter: 2019Q4

REPORT INFORMATION
  Report Type: Spontaneous
  Country: US (occurrence: US)
  Receive Date: 20190903
  Receipt Date: 20190903
  Transmission Date: 20200122
  Serious: Yes (Life-Threatening, Hospitalization)
  Sender: FDA-Public Use
  Company Number: None

PATIENT
  Age: 37 Year
  Sex: Female
  Weight: 65.7 kg

DRUGS (2)
  1. OCRELIZUMAB. [Suspect]
     Active Substance: OCRELIZUMAB
     Indication: MULTIPLE SCLEROSIS
     Dosage: ?          OTHER FREQUENCY:Q 6 MONTHS;?
     Route: 041
     Dates: start: 20190109, end: 20190803
  2. OCRELIZUMAB. [Concomitant]
     Active Substance: OCRELIZUMAB
     Dates: start: 20190109, end: 20190803

REACTIONS (7)
  - Febrile neutropenia [None]
  - Cytomegalovirus test positive [None]
  - Fluid overload [None]
  - Hypoaesthesia [None]
  - Stomatitis [None]
  - Epstein-Barr virus antibody positive [None]
  - Septic shock [None]

NARRATIVE: CASE EVENT DATE: 20190829
